FAERS Safety Report 10224849 (Version 2)
Quarter: 2014Q2

REPORT INFORMATION
  Report Type: Spontaneous
  Country: BR (occurrence: BR)
  Receive Date: 20140609
  Receipt Date: 20140609
  Transmission Date: 20141212
  Serious: Yes (Hospitalization)
  Sender: FDA-Public Use
  Company Number: BR-B.I. PHARMACEUTICALS,INC./RIDGEFIELD-2014-BI-21379BR

PATIENT
  Age: 63 Year
  Sex: Female
  Weight: 63 kg

DRUGS (5)
  1. PRADAXA [Suspect]
     Indication: HEART RATE INCREASED
     Dosage: 110 MG
     Route: 048
     Dates: start: 20140512
  2. ADALAT [Concomitant]
     Indication: HYPERTENSION
     Dosage: 30 MG
     Route: 048
  3. GLORANA [Concomitant]
     Indication: HYPERTENSION
     Dosage: 50 MG
     Route: 048
  4. ATENOLOL [Concomitant]
     Indication: HYPERTENSION
     Dosage: 50 MG
     Route: 048
  5. PRAZOTONA [Concomitant]
     Indication: SEDATIVE THERAPY
     Dosage: 50 MG
     Route: 048
     Dates: start: 201405

REACTIONS (6)
  - Heart rate increased [Recovered/Resolved]
  - Dizziness [Recovered/Resolved]
  - Headache [Recovered/Resolved]
  - Palpitations [Recovered/Resolved]
  - Nausea [Recovered/Resolved]
  - Off label use [Not Recovered/Not Resolved]
